FAERS Safety Report 12673255 (Version 1)
Quarter: 2016Q3

REPORT INFORMATION
  Report Type: Report from Study
  Country: US (occurrence: US)
  Receive Date: 20160822
  Receipt Date: 20160822
  Transmission Date: 20161109
  Serious: Yes (Other)
  Sender: FDA-Public Use
  Company Number: US-BIOGEN-2016BI00280932

PATIENT
  Sex: Female

DRUGS (1)
  1. AVONEX [Suspect]
     Active Substance: INTERFERON BETA-1A
     Indication: PRODUCT USED FOR UNKNOWN INDICATION
     Route: 064

REACTIONS (4)
  - Low birth weight baby [Recovered/Resolved]
  - Infantile colic [Recovered/Resolved]
  - Haematemesis [Not Recovered/Not Resolved]
  - Foetal exposure timing unspecified [Recovered/Resolved]
